FAERS Safety Report 21572028 (Version 4)
Quarter: 2023Q2

REPORT INFORMATION
  Report Type: Report from Study
  Country: US (occurrence: US)
  Receive Date: 20221109
  Receipt Date: 20230405
  Transmission Date: 20230721
  Serious: Yes (Other)
  Sender: FDA-Public Use
  Company Number: US-ABBVIE-4191514

PATIENT
  Age: 64 Year
  Sex: Female

DRUGS (2)
  1. RINVOQ [Suspect]
     Active Substance: UPADACITINIB
     Indication: Rheumatoid arthritis
     Route: 048
  2. RINVOQ [Suspect]
     Active Substance: UPADACITINIB
     Indication: Rheumatoid arthritis
     Route: 048
     Dates: start: 20230326

REACTIONS (10)
  - Knee arthroplasty [Recovering/Resolving]
  - Pruritus [Unknown]
  - Dermatitis contact [Recovering/Resolving]
  - Joint stiffness [Recovering/Resolving]
  - Dermatitis allergic [Unknown]
  - Rash papular [Unknown]
  - Scab [Unknown]
  - Blister [Unknown]
  - Post procedural discharge [Recovered/Resolved]
  - Skin discharge [Unknown]

NARRATIVE: CASE EVENT DATE: 20220915
